FAERS Safety Report 4978779-X (Version None)
Quarter: 2006Q2

REPORT INFORMATION
  Report Type: 
  Country: None (occurrence: None)
  Receive Date: 20060420
  Receipt Date: 20051130
  Transmission Date: 20061013
  Serious: Yes (Hospitalization, Other)
  Sender: FDA-Public Use
  Company Number: US-MERCK-0512USA00022

PATIENT
  Age: 58 Year
  Sex: Male
  Weight: 70 kg

DRUGS (4)
  1. VIOXX [Suspect]
     Indication: ARTHRALGIA
     Route: 048
     Dates: start: 20000717, end: 20021231
  2. VIOXX [Suspect]
     Indication: BACK PAIN
     Route: 048
     Dates: start: 20000717, end: 20021231
  3. ACICLOVIR AG [Concomitant]
     Route: 065
  4. MIRAPEX [Concomitant]
     Route: 065

REACTIONS (24)
  - AORTIC DISORDER [None]
  - ARTERIOSCLEROSIS [None]
  - ARTHROPATHY [None]
  - ASTHMA [None]
  - ATRIAL FIBRILLATION [None]
  - ATRIAL FLUTTER [None]
  - BACK DISORDER [None]
  - BLOOD CHOLESTEROL INCREASED [None]
  - BLOOD HOMOCYSTEINE INCREASED [None]
  - BLOOD TRIGLYCERIDES INCREASED [None]
  - CARDIAC DISORDER [None]
  - CARDIOVASCULAR DISORDER [None]
  - CHEST PAIN [None]
  - CHRONIC SINUSITIS [None]
  - CORONARY ARTERY REOCCLUSION [None]
  - DYSLIPIDAEMIA [None]
  - GLUCOSE TOLERANCE TEST ABNORMAL [None]
  - HIATUS HERNIA [None]
  - IRON DEFICIENCY ANAEMIA [None]
  - LIPOPROTEIN (A) INCREASED [None]
  - MYOCARDIAL INFARCTION [None]
  - PROSTATITIS [None]
  - ROTATOR CUFF SYNDROME [None]
  - SEASONAL ALLERGY [None]
